FAERS Safety Report 6647661-4 (Version None)
Quarter: 2010Q1

REPORT INFORMATION
  Report Type: 
  Country: None (occurrence: None)
  Receive Date: 20100323
  Receipt Date: 20100323
  Transmission Date: 20100710
  Serious: Yes (Hospitalization)
  Sender: FDA-Public Use
  Company Number: None

PATIENT
  Sex: Male
  Weight: 103.2 kg

DRUGS (19)
  1. PROPRANOLOL HYDROCHLORIDE [Suspect]
     Indication: AGITATION
     Dosage: 120MG DAILY PO
     Route: 048
     Dates: start: 20091207, end: 20091217
  2. PROPRANOLOL HYDROCHLORIDE [Suspect]
     Indication: POST-TRAUMATIC STRESS DISORDER
     Dosage: 120MG DAILY PO
     Route: 048
     Dates: start: 20091207, end: 20091217
  3. PERPHENAZINE [Suspect]
     Indication: AGITATION
     Dosage: 16MG/20MG=36TOTAL DAILY 16MG AM 20MG PM PO
     Route: 048
     Dates: start: 20070201
  4. FLUTICASONE PROPIONATE [Concomitant]
  5. LORATADINE [Concomitant]
  6. ZOLOFT [Concomitant]
  7. PRILOSEC [Concomitant]
  8. ANTACID TAB [Concomitant]
  9. ASPIRIN [Concomitant]
  10. METFORMIN HYDROCHLORIDE [Concomitant]
  11. CALCIUM W/VIT D [Concomitant]
  12. THERAVITAMIN [Concomitant]
  13. AQUAPHOR OINTMENT [Concomitant]
  14. BASIS SOAP [Concomitant]
  15. TRIPLE ANTIBIOTIC OINTMENT [Concomitant]
  16. COSOPT [Concomitant]
  17. LOVAZA [Concomitant]
  18. TRICOR [Concomitant]
  19. QVAR INHALER [Concomitant]

REACTIONS (1)
  - SYNCOPE [None]
